FAERS Safety Report 5445636-4 (Version None)
Quarter: 2007Q3

REPORT INFORMATION
  Report Type: 
  Country: None (occurrence: None)
  Receive Date: 20070906
  Receipt Date: 20070830
  Transmission Date: 20080115
  Serious: Yes (Hospitalization)
  Sender: FDA-Public Use
  Company Number: AU-MERCK-0708AUS00305

PATIENT
  Age: 14 Year
  Sex: Female
  Weight: 41 kg

DRUGS (6)
  1. PERIACTIN [Suspect]
     Indication: MIGRAINE
     Route: 048
  2. PERIACTIN [Suspect]
     Route: 048
  3. PROMETHAZINE [Suspect]
     Indication: ANTIALLERGIC THERAPY
     Route: 048
  4. PROMETHAZINE [Suspect]
     Route: 048
  5. [THERAPY UNSPECIFIED] [Concomitant]
     Indication: DEPRESSION
     Route: 065
  6. FLUVOXAMINE MALEATE [Suspect]
     Route: 065

REACTIONS (2)
  - ANTICHOLINERGIC SYNDROME [None]
  - DELIRIUM [None]
